FAERS Safety Report 12464779 (Version 2)
Quarter: 2016Q2

REPORT INFORMATION
  Report Type: Spontaneous
  Country: FR (occurrence: FR)
  Receive Date: 20160614
  Receipt Date: 20160617
  Transmission Date: 20160815
  Serious: Yes (Hospitalization)
  Sender: FDA-Public Use
  Company Number: FR-PFIZER INC-2016292618

PATIENT
  Age: 56 Year
  Sex: Male

DRUGS (12)
  1. OFLOCET /00731801/ [Concomitant]
     Active Substance: OFLOXACIN
     Indication: PROSTATITIS
     Dosage: 200 MG, 2X/DAY
     Route: 048
     Dates: start: 20160517, end: 20160523
  2. TRIATEC [Suspect]
     Active Substance: RAMIPRIL
     Indication: HYPERTENSION
     Dosage: 10 MG, 1X/DAY
     Route: 048
     Dates: end: 20160523
  3. TAHOR [Suspect]
     Active Substance: ATORVASTATIN CALCIUM
     Indication: DYSLIPIDAEMIA
     Dosage: 40 MG, 1X/DAY
     Route: 048
  4. TRAMADOL. [Concomitant]
     Active Substance: TRAMADOL
     Dosage: UNK, AS NEEDED
  5. GENTALLINE [Concomitant]
     Active Substance: GENTAMICIN SULFATE
     Indication: PROSTATITIS
     Dosage: UNK
     Dates: start: 20160517, end: 20160517
  6. PLAVIX [Concomitant]
     Active Substance: CLOPIDOGREL BISULFATE
     Indication: CARDIOVASCULAR EVENT PROPHYLAXIS
     Dosage: 1 DF, 1X/DAY
     Route: 048
  7. COAPROVEL [Suspect]
     Active Substance: HYDROCHLOROTHIAZIDE\IRBESARTAN
     Indication: HYPERTENSION
     Dosage: 1 DF (IRBESARTAN / HYDROCHLOROTHIAZIDE 300 MG/12.5 MG), 1X/DAY
     Route: 048
     Dates: end: 20160523
  8. JOSIR [Concomitant]
     Active Substance: TAMSULOSIN
     Indication: BENIGN PROSTATIC HYPERPLASIA
     Dosage: 0.4 MG, 1X/DAY
     Route: 048
  9. HUMALOG [Concomitant]
     Active Substance: INSULIN LISPRO
     Dosage: UNK
  10. AVODART [Concomitant]
     Active Substance: DUTASTERIDE
     Indication: BENIGN PROSTATIC HYPERPLASIA
     Dosage: 0.5 MG, 1X/DAY
     Route: 048
  11. GLUCOPHAGE [Concomitant]
     Active Substance: METFORMIN HYDROCHLORIDE
     Indication: TYPE 1 DIABETES MELLITUS
     Dosage: 1000 MG, 2X/DAY
     Route: 048
  12. AERIUS [Concomitant]
     Active Substance: DESLORATADINE
     Dosage: 5 MG, 1X/DAY
     Route: 048

REACTIONS (4)
  - Localised oedema [Recovered/Resolved]
  - Oedema peripheral [Recovered/Resolved]
  - Macroglossia [Recovered/Resolved]
  - Angioedema [Unknown]

NARRATIVE: CASE EVENT DATE: 20160523
